FAERS Safety Report 16487858 (Version 1)
Quarter: 2019Q2

REPORT INFORMATION
  Report Type: Report from Study
  Country: ES (occurrence: ES)
  Receive Date: 20190627
  Receipt Date: 20190627
  Transmission Date: 20190711
  Serious: Yes (Other)
  Sender: FDA-Public Use
  Company Number: ES-SHIRE-ES201918315

PATIENT

DRUGS (3)
  1. HUMAN NORMAL IMMUNOGLOBULIN [Concomitant]
     Active Substance: HUMAN IMMUNOGLOBULIN G
     Route: 058
  2. HUMAN NORMAL IMMUNOGLOBULIN [Concomitant]
     Active Substance: HUMAN IMMUNOGLOBULIN G
     Indication: IMMUNODEFICIENCY COMMON VARIABLE
     Route: 042
  3. HUMAN IMMUNOGLOBULIN; HYALURONIDASE [Suspect]
     Active Substance: HUMAN IMMUNOGLOBULIN G\HYALURONIDASE RECOMBINANT HUMAN
     Indication: IMMUNODEFICIENCY COMMON VARIABLE
     Dosage: 12.5 GRAM, 15 DAYS
     Route: 058
     Dates: start: 20190604

REACTIONS (9)
  - Exposure via skin contact [Recovered/Resolved]
  - Injection site erythema [Recovered/Resolved]
  - Infusion site warmth [Not Recovered/Not Resolved]
  - Injection site induration [Recovered/Resolved]
  - Urinary tract infection [Recovered/Resolved]
  - Injection site inflammation [Unknown]
  - Infusion site oedema [Unknown]
  - Injection site pain [Recovered/Resolved]
  - Back pain [Recovered/Resolved]

NARRATIVE: CASE EVENT DATE: 20190604
